FAERS Safety Report 9889737 (Version 1)
Quarter: 2014Q1

REPORT INFORMATION
  Report Type: Spontaneous
  Country: IT (occurrence: IT)
  Receive Date: 20140211
  Receipt Date: 20140211
  Transmission Date: 20141002
  Serious: Yes (Other)
  Sender: FDA-Public Use
  Company Number: IT-PFIZER INC-2014034198

PATIENT
  Age: 33 Year
  Sex: Male

DRUGS (3)
  1. CISPLATIN TEVA [Suspect]
     Indication: TESTICULAR EMBRYONAL CARCINOMA
     Dosage: 38 MG/M2 PER DAY, CYCLIC
     Route: 042
     Dates: start: 20131206, end: 20140101
  2. ETOPOSIDE-TEVA [Suspect]
     Indication: TESTICULAR EMBRYONAL CARCINOMA
     Dosage: 190 MG/M2 PER DAY, CYCLIC
     Route: 042
     Dates: start: 20131206, end: 20140101
  3. BLEOPRIM [Suspect]
     Indication: TESTICULAR EMBRYONAL CARCINOMA
     Dosage: 30 IU/M2, CYCLICAL
     Route: 030
     Dates: start: 20131207, end: 20131229

REACTIONS (3)
  - Arthralgia [Unknown]
  - Pain [Unknown]
  - Erectile dysfunction [Unknown]
